FAERS Safety Report 13835884 (Version 8)
Quarter: 2017Q4

REPORT INFORMATION
  Report Type: Spontaneous
  Country: CA (occurrence: CA)
  Receive Date: 20170804
  Receipt Date: 20171128
  Transmission Date: 20180320
  Serious: Yes (Hospitalization, Other)
  Sender: FDA-Public Use
  Company Number: CA-HIKMA PHARMACEUTICALS CO. LTD-2017CA010242

PATIENT

DRUGS (12)
  1. SPIRIVA [Concomitant]
     Active Substance: TIOTROPIUM BROMIDE MONOHYDRATE
     Dosage: 1 INHALATION DAILY
  2. INFLECTRA [Suspect]
     Active Substance: INFLIXIMAB-DYYB
     Dosage: 600 MG, (11.54MG/KG), EVERY 8 WEEKS
     Route: 042
     Dates: start: 20171116
  3. IRON [Concomitant]
     Active Substance: IRON
     Dosage: UNK
  4. APO-SALVENT                        /00139501/ [Concomitant]
     Dosage: UNK
     Dates: start: 20170715
  5. INFLECTRA [Suspect]
     Active Substance: INFLIXIMAB-DYYB
     Indication: CROHN^S DISEASE
     Dosage: 300 MG, CYCLIC, EVERY 0, 2,6 WEEKS, THEN EVERY 8 WEEKS
     Route: 042
     Dates: start: 20170503, end: 20170920
  6. LIVER OIL [Concomitant]
     Dosage: UNK
  7. OMEPRAZOLE. [Concomitant]
     Active Substance: OMEPRAZOLE
     Dosage: 20 MG, DAILY
  8. TYLENOL WITH CODEINE [Concomitant]
     Active Substance: ACETAMINOPHEN\CODEINE PHOSPHATE
     Dosage: AS NEEDED
  9. IRBESARTAN. [Concomitant]
     Active Substance: IRBESARTAN
     Dosage: 150 MG, DAILY
     Dates: start: 1987
  10. ADVAIR HFA [Concomitant]
     Active Substance: FLUTICASONE PROPIONATE\SALMETEROL XINAFOATE
     Dosage: UNK UNK, BID
  11. VITAMINS                           /00067501/ [Concomitant]
     Active Substance: VITAMINS
     Dosage: UNK
  12. METOPROLOL. [Concomitant]
     Active Substance: METOPROLOL
     Dosage: 50 MG, BID
     Dates: start: 1987

REACTIONS (9)
  - Lung disorder [Unknown]
  - Pneumonia [Recovered/Resolved]
  - Chronic obstructive pulmonary disease [Unknown]
  - Cough [Unknown]
  - Crepitations [Not Recovered/Not Resolved]
  - Oedema peripheral [Unknown]
  - Incorrect dose administered [Unknown]
  - Fistula [Not Recovered/Not Resolved]
  - Dyspnoea [Not Recovered/Not Resolved]

NARRATIVE: CASE EVENT DATE: 2017
